FAERS Safety Report 10025644 (Version 1)
Quarter: 2014Q1

REPORT INFORMATION
  Report Type: Spontaneous
  Country: US (occurrence: None)
  Receive Date: 20140318
  Receipt Date: 20140318
  Transmission Date: 20141002
  Serious: Yes (Congenital Anomaly, Other)
  Sender: FDA-Public Use
  Company Number: 2014AP001940

PATIENT
  Sex: 0

DRUGS (3)
  1. CARBAMAZEPINE [Suspect]
     Route: 064
  2. DIVALPROEX SODIUM DELAYED-RELEASE TABLETS [Suspect]
     Route: 064
  3. PHENYTOIN [Suspect]
     Route: 064

REACTIONS (5)
  - Exposure during pregnancy [None]
  - Single functional kidney [None]
  - Congenital ureteric anomaly [None]
  - Kidney malformation [None]
  - Cryptorchism [None]
